FAERS Safety Report 6369387-7 (Version None)
Quarter: 2009Q3

REPORT INFORMATION
  Report Type: 
  Country: None (occurrence: None)
  Receive Date: 20090917
  Receipt Date: 20090903
  Transmission Date: 20100115
  Serious: Yes (Hospitalization)
  Sender: FDA-Public Use
  Company Number: AE-2009-181

PATIENT
  Age: 15 Year
  Sex: Female
  Weight: 60 kg

DRUGS (1)
  1. FUROSEMIDE [Suspect]
     Dosage: ORAL
     Route: 048

REACTIONS (2)
  - DRUG ABUSE [None]
  - METABOLIC ALKALOSIS [None]
